FAERS Safety Report 5214400-3 (Version None)
Quarter: 2007Q1

REPORT INFORMATION
  Report Type: 
  Country: None (occurrence: None)
  Receive Date: 20070116
  Receipt Date: 20070108
  Transmission Date: 20070707
  Serious: Yes (Hospitalization)
  Sender: FDA-Public Use
  Company Number: 233054

PATIENT
  Age: 72 Year
  Sex: Male

DRUGS (12)
  1. RITUXAN [Suspect]
     Indication: LYMPHOMA
     Dosage: 375 MG/M2, INTRAVENOUS
     Route: 042
     Dates: start: 20061120
  2. CYCLOPHOSPHAMIDE [Concomitant]
  3. VINCRISTINE [Concomitant]
  4. PREDNISONE TAB [Concomitant]
  5. NEULASTA [Concomitant]
  6. ARANESP [Concomitant]
  7. NITROGLYCERIN [Concomitant]
  8. DIGOXIN [Concomitant]
  9. CARDIAC MEDICATION NOS (CARDIAC MEDICATION NOS) [Concomitant]
  10. BENADRYL [Concomitant]
  11. TYLENOL (CAPLET) [Concomitant]
  12. SOLU-MEDROL [Concomitant]

REACTIONS (4)
  - ANAEMIA [None]
  - CARDIAC FAILURE CONGESTIVE [None]
  - CHEST PAIN [None]
  - CONDITION AGGRAVATED [None]
